FAERS Safety Report 4292273-3 (Version None)
Quarter: 2004Q1

REPORT INFORMATION
  Report Type: 
  Country: None (occurrence: None)
  Receive Date: 20040211
  Receipt Date: 20021104
  Transmission Date: 20041129
  Serious: Yes (Death, Life-Threatening, Hospitalization)
  Sender: FDA-Public Use
  Company Number: FR-ROCHE-324853

PATIENT
  Age: 61 Year
  Sex: Female

DRUGS (6)
  1. MYCOPHENOLATE MOFETIL [Suspect]
     Route: 048
  2. MYCOPHENOLATE MOFETIL [Suspect]
     Route: 048
     Dates: end: 20021101
  3. THYMOGLOBULIN [Suspect]
     Route: 065
  4. NEORAL [Suspect]
     Route: 048
  5. CORTICOSTEROIDS [Suspect]
     Route: 048
  6. UNSPECIFIED MEDICATIONS [Concomitant]

REACTIONS (6)
  - ACUTE RESPIRATORY DISTRESS SYNDROME [None]
  - BONE PAIN [None]
  - CYTOMEGALOVIRUS INFECTION [None]
  - CYTOMEGALOVIRUS SYNDROME [None]
  - LUNG DISORDER [None]
  - SEPSIS [None]
